FAERS Safety Report 9219498 (Version 1)
Quarter: 2013Q2

REPORT INFORMATION
  Report Type: Spontaneous
  Country: US (occurrence: US)
  Receive Date: 20130409
  Receipt Date: 20130409
  Transmission Date: 20140414
  Serious: Yes (Other)
  Sender: FDA-Public Use
  Company Number: US-PFIZER INC-2013107773

PATIENT
  Age: 61 Year
  Sex: Female
  Weight: 81.63 kg

DRUGS (2)
  1. LEVOXYL [Suspect]
     Indication: HYPOTHYROIDISM
     Dosage: 0.88 UG, 1X/DAY
     Route: 048
     Dates: start: 201206, end: 20130402
  2. SINEMET [Concomitant]
     Indication: PARKINSON^S DISEASE
     Dosage: 6 MG, 6X/DAY

REACTIONS (4)
  - Product quality issue [Unknown]
  - Weight increased [Unknown]
  - Drug intolerance [Unknown]
  - Glossodynia [Recovered/Resolved]
